FAERS Safety Report 5483725-9 (Version None)
Quarter: 2007Q4

REPORT INFORMATION
  Report Type: 
  Country: None (occurrence: None)
  Receive Date: 20071012
  Receipt Date: 20071012
  Transmission Date: 20080405
  Serious: Yes (Other)
  Sender: FDA-Public Use
  Company Number: A0687406A

PATIENT
  Age: 45 Year
  Sex: Female

DRUGS (8)
  1. COMMIT [Suspect]
     Indication: SMOKING CESSATION THERAPY
     Route: 002
  2. EFFEXOR XR [Concomitant]
  3. TOPAMAX [Concomitant]
  4. FIORICET [Concomitant]
  5. VITAMIN B6 [Concomitant]
  6. ASCORBIC ACID [Concomitant]
  7. MAGNESIUM SULFATE [Concomitant]
  8. FISH OIL [Concomitant]

REACTIONS (5)
  - DEPENDENCE [None]
  - GLOSSITIS [None]
  - INTENTIONAL DRUG MISUSE [None]
  - NICOTINE DEPENDENCE [None]
  - TONGUE DISORDER [None]
